FAERS Safety Report 9292585 (Version 2)
Quarter: 2013Q3

REPORT INFORMATION
  Report Type: Spontaneous
  Country: BR (occurrence: BR)
  Receive Date: 20130516
  Receipt Date: 20130705
  Transmission Date: 20140515
  Serious: Yes (Other)
  Sender: FDA-Public Use
  Company Number: BR-SANOFI-AVENTIS-2013SA048068

PATIENT
  Age: 15 Year
  Sex: Female
  Weight: 64 kg

DRUGS (3)
  1. LANTUS [Suspect]
     Indication: TYPE 1 DIABETES MELLITUS
     Dosage: 50 IU AT MORNING AND 8 IU AT NIGHT
     Route: 058
     Dates: start: 2010
  2. CLIKSTAR [Concomitant]
     Indication: TYPE 1 DIABETES MELLITUS
     Route: 058
     Dates: start: 2010
  3. HUMALOG [Concomitant]
     Indication: TYPE 1 DIABETES MELLITUS
     Dosage: DOSE: 10UI TO 12 UI DAILY
     Route: 058
     Dates: start: 2010

REACTIONS (8)
  - Ligament rupture [Unknown]
  - Pain [Unknown]
  - Hypothyroidism [Not Recovered/Not Resolved]
  - Injection site pain [Not Recovered/Not Resolved]
  - Hypoglycaemia [Unknown]
  - Tremor [Unknown]
  - Feeling abnormal [Unknown]
  - Sensory disturbance [Unknown]
